FAERS Safety Report 13084308 (Version 1)
Quarter: 2017Q1

REPORT INFORMATION
  Report Type: Spontaneous
  Country: US (occurrence: US)
  Receive Date: 20170104
  Receipt Date: 20170104
  Transmission Date: 20170428
  Serious: No
  Sender: FDA-Public Use
  Company Number: None

PATIENT

DRUGS (2)
  1. ATROPINE. [Suspect]
     Active Substance: ATROPINE
     Dosage: DOSAGE FORM - DROPS
     Route: 060
  2. ATROPINE. [Suspect]
     Active Substance: ATROPINE
     Dosage: DOSAGE FORM - SOLUTION - TYPE - BOTTLE - SIZE 5 ML
     Route: 047

REACTIONS (1)
  - Wrong drug administered [None]
